FAERS Safety Report 19059080 (Version 1)
Quarter: 2021Q1

REPORT INFORMATION
  Report Type: Report from Study
  Country: None (occurrence: US)
  Receive Date: 20210325
  Receipt Date: 20210325
  Transmission Date: 20210420
  Serious: Yes (Hospitalization, Other)
  Sender: FDA-Public Use
  Company Number: US-ABBVIE-21K-163-3823765-00

PATIENT
  Age: 76 Year
  Sex: Male

DRUGS (1)
  1. VENCLEXTA [Suspect]
     Active Substance: VENETOCLAX
     Indication: ACUTE MYELOID LEUKAEMIA
     Route: 048
     Dates: start: 20210309, end: 202103

REACTIONS (9)
  - Packed red blood cell transfusion [Unknown]
  - Dyspnoea [Unknown]
  - Dizziness [Unknown]
  - Malaise [Unknown]
  - Mental impairment [Unknown]
  - Platelet transfusion [Unknown]
  - Adverse drug reaction [Unknown]
  - Hospitalisation [Recovered/Resolved]
  - Asthenia [Unknown]

NARRATIVE: CASE EVENT DATE: 202103
